FAERS Safety Report 9324316 (Version 2)
Quarter: 2013Q2

REPORT INFORMATION
  Report Type: Report from Study
  Country: US (occurrence: US)
  Receive Date: 20130603
  Receipt Date: 20130605
  Transmission Date: 20140414
  Serious: Yes (Other)
  Sender: FDA-Public Use
  Company Number: US-PFIZER INC-2011311606

PATIENT
  Sex: Female

DRUGS (2)
  1. LIPITOR [Suspect]
     Indication: BLOOD CHOLESTEROL INCREASED
     Dosage: 10 MG, FOR 2 DAYS AND THEN STOP FOR NEXT 2 DAYS
     Route: 048
  2. SERTRALINE [Concomitant]
     Dosage: UNK, 1X/DAY

REACTIONS (2)
  - Arthropathy [Unknown]
  - Inappropriate schedule of drug administration [Unknown]
